FAERS Safety Report 25010483 (Version 1)
Quarter: 2025Q1

REPORT INFORMATION
  Report Type: Spontaneous
  Country: FR (occurrence: FR)
  Receive Date: 20250225
  Receipt Date: 20250225
  Transmission Date: 20250409
  Serious: Yes (Other)
  Sender: MYLAN
  Company Number: None

PATIENT
  Age: 23 Year
  Sex: Female

DRUGS (2)
  1. KETOPROFEN [Suspect]
     Active Substance: KETOPROFEN
     Indication: Ligament sprain
     Dosage: 3 DOSAGE FORM, QD
     Dates: start: 20120716, end: 20120718
  2. KETOPROFEN [Suspect]
     Active Substance: KETOPROFEN
     Indication: Ligament sprain
     Dosage: 200 MILLIGRAM, QD, PROLONGED-RELEASE SCORED TABLET
     Dates: start: 20120718, end: 20120718

REACTIONS (1)
  - Angioedema [Recovered/Resolved]

NARRATIVE: CASE EVENT DATE: 20120718
